FAERS Safety Report 7276239-7 (Version None)
Quarter: 2011Q1

REPORT INFORMATION
  Report Type: 
  Country: None (occurrence: None)
  Receive Date: 20110204
  Receipt Date: 20110128
  Transmission Date: 20110831
  Serious: Yes (Death, Hospitalization)
  Sender: FDA-Public Use
  Company Number: PHHY2011BR07867

PATIENT
  Sex: Female

DRUGS (10)
  1. PAMELOR [Suspect]
     Indication: ANTIDEPRESSANT THERAPY
     Dosage: 10 MG, UNK
     Dates: start: 20100301
  2. ACETYLSALICYLIC ACID [Concomitant]
     Dosage: 1 TABLET DAILY
  3. FORASEQ [Suspect]
     Indication: DYSPNOEA
     Dosage: 4 DF, UNK
  4. MAREVAN [Concomitant]
     Dosage: 1 TABLET DAILY
  5. FIXICAL [Concomitant]
     Indication: OSTEOPOROSIS
     Dosage: UNK
     Dates: start: 20080101
  6. ALPRAZOLAM [Concomitant]
     Dosage: 1 TABLET DAILY
  7. DIGOXIN [Concomitant]
     Dosage: UNK
     Dates: start: 20100301
  8. PAMELOR [Suspect]
     Dosage: 50 MG, UNK
  9. PAMELOR [Suspect]
     Dosage: 75 MG, UNK
  10. PENTOXIFYLLINE [Concomitant]
     Indication: DYSPNOEA
     Dosage: 2 TABLETS DAILY
     Dates: start: 20090101

REACTIONS (12)
  - DISORIENTATION [None]
  - LUNG DISORDER [None]
  - DYSARTHRIA [None]
  - HAEMORRHAGE [None]
  - BLOOD PRESSURE DECREASED [None]
  - FEELING ABNORMAL [None]
  - AGITATION [None]
  - DYSPNOEA [None]
  - COMA [None]
  - INFECTION [None]
  - ANAEMIA [None]
  - PNEUMONIA [None]
